FAERS Safety Report 4440411-1 (Version None)
Quarter: 2004Q3

REPORT INFORMATION
  Report Type: 
  Country: None (occurrence: None)
  Receive Date: 20040728
  Receipt Date: 20040419
  Transmission Date: 20050211
  Serious: No
  Sender: FDA-Public Use
  Company Number: USA040362713

PATIENT
  Sex: Female

DRUGS (2)
  1. STRATTERA [Suspect]
     Indication: ATTENTION DEFICIT/HYPERACTIVITY DISORDER
     Dosage: 40 MG AT BEDTIME
     Dates: start: 20040316
  2. STRATTERA [Suspect]
     Indication: DEPRESSION
     Dosage: 40 MG AT BEDTIME
     Dates: start: 20040316

REACTIONS (9)
  - ANOREXIA [None]
  - CONSTIPATION [None]
  - DRUG INEFFECTIVE [None]
  - DYSGEUSIA [None]
  - FEELING ABNORMAL [None]
  - MIDDLE INSOMNIA [None]
  - NAUSEA [None]
  - THROAT IRRITATION [None]
  - VIRAL INFECTION [None]
